FAERS Safety Report 9728426 (Version 2)
Quarter: 2013Q4

REPORT INFORMATION
  Report Type: Spontaneous
  Country: FI (occurrence: FI)
  Receive Date: 20131204
  Receipt Date: 20131223
  Transmission Date: 20140711
  Serious: Yes (Other)
  Sender: FDA-Public Use
  Company Number: FI-ASTELLAS-2013EU010640

PATIENT
  Age: 60 Year
  Sex: Female

DRUGS (1)
  1. BETMIGA [Suspect]
     Dosage: 50 MG, UNKNOWN/D
     Route: 048

REACTIONS (2)
  - Atrial fibrillation [Recovered/Resolved]
  - Arrhythmia [Recovered/Resolved]
